FAERS Safety Report 7935452-3 (Version None)
Quarter: 2011Q4

REPORT INFORMATION
  Report Type: 
  Country: None (occurrence: None)
  Receive Date: 20111122
  Receipt Date: 20111107
  Transmission Date: 20120403
  Serious: Yes (Other)
  Sender: FDA-Public Use
  Company Number: US-ROCHE-1009784

PATIENT
  Sex: Female

DRUGS (2)
  1. VESANOID [Suspect]
     Indication: BREAST CANCER METASTATIC
     Route: 048
  2. PACLITAXEL [Suspect]
     Indication: BREAST CANCER METASTATIC
     Route: 042

REACTIONS (6)
  - CONVULSION [None]
  - VOMITING [None]
  - PAIN [None]
  - ANAEMIA [None]
  - NAUSEA [None]
  - ATAXIA [None]
